FAERS Safety Report 18816601 (Version 2)
Quarter: 2021Q3

REPORT INFORMATION
  Report Type: Report from Study
  Country: US (occurrence: US)
  Receive Date: 20210201
  Receipt Date: 20210901
  Transmission Date: 20211014
  Serious: Yes (Other)
  Sender: FDA-Public Use
  Company Number: US-EMD SERONO-9215466

PATIENT
  Sex: Female

DRUGS (1)
  1. REBIF [Suspect]
     Active Substance: INTERFERON BETA-1A
     Indication: MULTIPLE SCLEROSIS
     Dosage: PREFILLED SYRINGE
     Route: 058
     Dates: start: 20060512, end: 20210614

REACTIONS (4)
  - Adhesion [Recovering/Resolving]
  - Injection site necrosis [Recovering/Resolving]
  - Injection site mass [Recovering/Resolving]
  - Injection site calcification [Recovering/Resolving]
